FAERS Safety Report 5411373-5 (Version None)
Quarter: 2007Q3

REPORT INFORMATION
  Report Type: 
  Country: None (occurrence: None)
  Receive Date: 20070810
  Receipt Date: 20070802
  Transmission Date: 20080115
  Serious: Yes (Hospitalization)
  Sender: FDA-Public Use
  Company Number: US-KINGPHARMUSA00001-K200700975

PATIENT

DRUGS (4)
  1. SKELAXIN [Suspect]
     Indication: MUSCLE SPASMS
     Dosage: 800 MG, TID
     Route: 048
     Dates: start: 20070701, end: 20070701
  2. LYRICA [Suspect]
  3. IBUPROFEN [Concomitant]
  4. CELEBREX [Concomitant]

REACTIONS (2)
  - BACK PAIN [None]
  - PANCYTOPENIA [None]
